FAERS Safety Report 8435975-7 (Version None)
Quarter: 2012Q2

REPORT INFORMATION
  Report Type: 
  Country: None (occurrence: None)
  Receive Date: 20120614
  Receipt Date: 20120612
  Transmission Date: 20120825
  Serious: Yes (Other)
  Sender: FDA-Public Use
  Company Number: DE-ROCHE-1064264

PATIENT
  Sex: Male

DRUGS (7)
  1. ASPIRIN [Concomitant]
  2. METHOTREXATE [Concomitant]
     Indication: RHEUMATOID ARTHRITIS
     Route: 058
  3. ZELBORAF [Suspect]
     Indication: MALIGNANT MELANOMA
     Route: 048
     Dates: start: 20120403
  4. ZELBORAF [Suspect]
     Route: 048
  5. PANTOPRAZOLE [Concomitant]
     Route: 048
  6. BISOPROLOL FUMARATE [Concomitant]
  7. PREDNISOLONE [Concomitant]
     Indication: RHEUMATOID ARTHRITIS
     Route: 048

REACTIONS (2)
  - LYMPHOPENIA [None]
  - PNEUMONIA [None]
